FAERS Safety Report 7480444-4 (Version None)
Quarter: 2011Q2

REPORT INFORMATION
  Report Type: 
  Country: None (occurrence: None)
  Receive Date: 20110516
  Receipt Date: 20110502
  Transmission Date: 20111010
  Serious: Yes (Death)
  Sender: FDA-Public Use
  Company Number: FR-ELI_LILLY_AND_COMPANY-FR201103007383

PATIENT
  Age: 80 Year
  Sex: Female
  Weight: 71 kg

DRUGS (4)
  1. FORTEO [Suspect]
     Indication: OSTEOPOROSIS
     Dosage: 20 UG, QD
     Route: 058
     Dates: start: 20100712, end: 20101201
  2. PREDNISONE [Concomitant]
     Indication: POLYARTHRITIS
     Dosage: 10 MG, QD
     Route: 048
     Dates: start: 20010101
  3. ZOCOR [Concomitant]
     Dosage: 20 MG, QD
     Route: 048
  4. FERROSTRANE [Concomitant]
     Indication: ANAEMIA

REACTIONS (1)
  - ANEURYSM RUPTURED [None]
